FAERS Safety Report 18768433 (Version 1)
Quarter: 2021Q1

REPORT INFORMATION
  Report Type: Spontaneous
  Country: US (occurrence: US)
  Receive Date: 20210121
  Receipt Date: 20210121
  Transmission Date: 20210419
  Serious: Yes (Hospitalization)
  Sender: FDA-Public Use
  Company Number: None

PATIENT
  Age: 68 Year
  Sex: Female
  Weight: 95.7 kg

DRUGS (1)
  1. BAMLANIVIMAB. [Suspect]
     Active Substance: BAMLANIVIMAB
     Indication: COVID-19
     Dosage: ?          OTHER FREQUENCY:ONCE;?
     Route: 042
     Dates: start: 20210118, end: 20210118

REACTIONS (6)
  - Hallucination [None]
  - Dyspnoea [None]
  - Infusion related reaction [None]
  - Pyrexia [None]
  - COVID-19 [None]
  - Tachyphrenia [None]

NARRATIVE: CASE EVENT DATE: 20210118
